FAERS Safety Report 12067301 (Version 1)
Quarter: 2016Q1

REPORT INFORMATION
  Report Type: Spontaneous
  Country: US (occurrence: US)
  Receive Date: 20160210
  Receipt Date: 20160210
  Transmission Date: 20160526
  Serious: No
  Sender: FDA-Public Use
  Company Number: US-JNJFOC-20160114790

PATIENT
  Weight: 84.1 kg

DRUGS (1)
  1. DARZALEX [Suspect]
     Active Substance: DARATUMUMAB
     Indication: PRODUCT USED FOR UNKNOWN INDICATION
     Route: 065

REACTIONS (4)
  - Infusion related reaction [Recovered/Resolved]
  - Wrong technique in product usage process [Not Recovered/Not Resolved]
  - Chest discomfort [Recovered/Resolved]
  - Dyspnoea [Recovered/Resolved]
